FAERS Safety Report 5178224-8 (Version None)
Quarter: 2006Q4

REPORT INFORMATION
  Report Type: 
  Country: None (occurrence: None)
  Receive Date: 20061208
  Receipt Date: 20061129
  Transmission Date: 20070319
  Serious: Yes (Other)
  Sender: FDA-Public Use
  Company Number: 2006SP007435

PATIENT
  Age: 66 Year
  Sex: Female

DRUGS (5)
  1. TEMODAL [Suspect]
     Indication: GLIOBLASTOMA
     Dosage: PO
     Route: 048
     Dates: start: 20060929
  2. TEMODAL [Suspect]
     Indication: GLIOBLASTOMA
     Dosage: PO
     Route: 048
     Dates: start: 20061020
  3. TEMODAL [Suspect]
     Indication: GLIOBLASTOMA
     Dosage: PO
     Route: 048
     Dates: start: 20061115
  4. ONDANSETRON (CON.) [Concomitant]
  5. RADIOTHERAPY (CON.) [Concomitant]

REACTIONS (4)
  - ANAPHYLACTIC SHOCK [None]
  - DIARRHOEA [None]
  - PYREXIA [None]
  - TREMOR [None]
